FAERS Safety Report 5848624-9 (Version None)
Quarter: 2008Q3

REPORT INFORMATION
  Report Type: 
  Country: None (occurrence: None)
  Receive Date: 20080814
  Receipt Date: 20080805
  Transmission Date: 20090109
  Serious: Yes (Death, Hospitalization)
  Sender: FDA-Public Use
  Company Number: ALK_00657_2008

PATIENT
  Sex: Male

DRUGS (1)
  1. VIVITROL [Suspect]
     Indication: ALCOHOLISM
     Dosage: (380 MG 1X/MONTH), (380 MG 1X/MONTH)
     Dates: start: 20060901, end: 20080301

REACTIONS (5)
  - ALCOHOL USE [None]
  - BODY TEMPERATURE INCREASED [None]
  - DELIRIUM TREMENS [None]
  - LOSS OF CONSCIOUSNESS [None]
  - TREATMENT NONCOMPLIANCE [None]
